FAERS Safety Report 21872071 (Version 1)
Quarter: 2023Q1

REPORT INFORMATION
  Report Type: Spontaneous
  Country: NO (occurrence: NO)
  Receive Date: 20230117
  Receipt Date: 20230117
  Transmission Date: 20230417
  Serious: Yes (Hospitalization, Other)
  Sender: FDA-Public Use
  Company Number: None

PATIENT
  Sex: Female

DRUGS (5)
  1. TAMOXIFEN [Suspect]
     Active Substance: TAMOXIFEN
     Indication: Prophylaxis
     Dosage: UNK UNK, QD
     Route: 065
     Dates: start: 201805, end: 202109
  2. TAMOXIFEN [Suspect]
     Active Substance: TAMOXIFEN
     Indication: Cancer hormonal therapy
  3. COMIRNATY [Concomitant]
     Active Substance: TOZINAMERAN
     Indication: Immunisation
     Dosage: DOSE NO IN SERIES:1
     Route: 065
     Dates: start: 20210122
  4. COMIRNATY [Concomitant]
     Active Substance: TOZINAMERAN
     Dosage: DOSE NO. IN SERIES: 2
     Route: 065
     Dates: start: 20210212
  5. CIPRALEX [Concomitant]
     Active Substance: ESCITALOPRAM OXALATE
     Indication: Depression
     Dosage: 10 MILLIGRAM
     Route: 065
     Dates: start: 201805, end: 202209

REACTIONS (8)
  - Transverse sinus stenosis [Unknown]
  - Dural arteriovenous fistula [Recovered/Resolved with Sequelae]
  - Arteriovenous fistula operation [Unknown]
  - Transverse sinus thrombosis [Unknown]
  - Heavy menstrual bleeding [Recovered/Resolved]
  - Tinnitus [Unknown]
  - Haemoglobin decreased [Unknown]
  - Headache [Unknown]

NARRATIVE: CASE EVENT DATE: 20200101
